FAERS Safety Report 11699659 (Version 1)
Quarter: 2015Q4

REPORT INFORMATION
  Report Type: Report from Study
  Country: US (occurrence: US)
  Receive Date: 20151105
  Receipt Date: 20151105
  Transmission Date: 20160304
  Serious: No
  Sender: FDA-Public Use
  Company Number: PHEH2015US022334

PATIENT
  Sex: Male

DRUGS (1)
  1. GLEEVEC [Suspect]
     Active Substance: IMATINIB MESYLATE
     Indication: SKIN DISORDER
     Dosage: 400 MG, UNK
     Route: 065
     Dates: start: 200803

REACTIONS (4)
  - Off label use [Unknown]
  - Hypereosinophilic syndrome [Unknown]
  - Haematidrosis [Unknown]
  - Diarrhoea [Unknown]
